FAERS Safety Report 18050396 (Version 3)
Quarter: 2020Q4

REPORT INFORMATION
  Report Type: Spontaneous
  Country: JP (occurrence: JP)
  Receive Date: 20200721
  Receipt Date: 20201103
  Transmission Date: 20210113
  Serious: Yes (Hospitalization, Other)
  Sender: FDA-Public Use
  Company Number: JP-ASTRAZENECA-2019SE94376

PATIENT
  Age: 70 Year
  Sex: Male
  Weight: 52 kg

DRUGS (1)
  1. IMFINZI [Suspect]
     Active Substance: DURVALUMAB
     Indication: NON-SMALL CELL LUNG CANCER
     Route: 042
     Dates: start: 20190110, end: 20190610

REACTIONS (4)
  - Pneumonitis [Recovered/Resolved with Sequelae]
  - Non-small cell lung cancer recurrent [Unknown]
  - Condition aggravated [Recovering/Resolving]
  - Radiation pneumonitis [Recovered/Resolved]

NARRATIVE: CASE EVENT DATE: 201903
